FAERS Safety Report 17508372 (Version 2)
Quarter: 2020Q2

REPORT INFORMATION
  Report Type: Report from Study
  Country: AT (occurrence: AT)
  Receive Date: 20200306
  Receipt Date: 20200605
  Transmission Date: 20200713
  Serious: Yes (Other)
  Sender: FDA-Public Use
  Company Number: AT-ROCHE-2514206

PATIENT
  Age: 82 Year
  Sex: Female
  Weight: 70 kg

DRUGS (6)
  1. NOMEXOR [Concomitant]
     Active Substance: NEBIVOLOL HYDROCHLORIDE
     Dosage: ONGOING = CHECKED
     Route: 065
     Dates: start: 20170305
  2. PERTUZUMAB. [Suspect]
     Active Substance: PERTUZUMAB
     Indication: HER2 POSITIVE BREAST CANCER
     Dosage: LATEST DOSE: 03/OCT/2019
     Route: 042
     Dates: start: 20190731
  3. THROMBO ASS [Concomitant]
     Active Substance: ASPIRIN
     Dosage: ONGOING = CHECKED
     Route: 065
     Dates: start: 20170305
  4. GALVUS [Concomitant]
     Active Substance: VILDAGLIPTIN
     Dosage: ONGOING = CHECKED
     Route: 065
  5. TRASTUZUMAB. [Suspect]
     Active Substance: TRASTUZUMAB
     Indication: HER2 POSITIVE BREAST CANCER
     Dosage: MOST RECENT DOSE PRIOR TO THE EVENT: 31/JUL/2019?LATEST DOSE: 03/OCT/2019
     Route: 041
     Dates: start: 20190731
  6. PACLITAXEL. [Suspect]
     Active Substance: PACLITAXEL
     Indication: HER2 POSITIVE BREAST CANCER
     Route: 042
     Dates: start: 20190731, end: 20190828

REACTIONS (3)
  - Acute kidney injury [Recovered/Resolved]
  - Diarrhoea [Recovered/Resolved]
  - Fatigue [Recovered/Resolved]

NARRATIVE: CASE EVENT DATE: 20190821
